FAERS Safety Report 5693213-2 (Version None)
Quarter: 2008Q2

REPORT INFORMATION
  Report Type: 
  Country: None (occurrence: None)
  Receive Date: 20080403
  Receipt Date: 20080324
  Transmission Date: 20081010
  Serious: Yes (Other)
  Sender: FDA-Public Use
  Company Number: PHEH2008US03116

PATIENT
  Age: 57 Year
  Sex: Female
  Weight: 93.877 kg

DRUGS (7)
  1. AREDIA [Suspect]
  2. ZOMETA [Suspect]
     Indication: BREAST CANCER METASTATIC
     Dosage: 4 MG, QW4
     Route: 042
  3. FEMARA [Concomitant]
  4. EFFEXOR XR [Concomitant]
  5. COZAAR [Concomitant]
  6. POTASSIUM CHLORIDE [Concomitant]
  7. MOTRIN [Concomitant]
     Dosage: PRN

REACTIONS (6)
  - HYPERBARIC OXYGEN THERAPY [None]
  - IMPAIRED HEALING [None]
  - INFECTION [None]
  - OSTEONECROSIS [None]
  - PAIN [None]
  - TOOTH EXTRACTION [None]
